FAERS Safety Report 4851989-8 (Version None)
Quarter: 2005Q4

REPORT INFORMATION
  Report Type: 
  Country: None (occurrence: None)
  Receive Date: 20051209
  Receipt Date: 20051125
  Transmission Date: 20060501
  Serious: Yes (Hospitalization)
  Sender: FDA-Public Use
  Company Number: TH-2005-020830

PATIENT

DRUGS (13)
  1. CAMPATH [Suspect]
     Dates: start: 20050916
  2. ETOPOSIDE [Suspect]
     Dates: start: 20050916
  3. METHYLPREDNISOLONE [Suspect]
     Dates: start: 20050916
  4. CYTARABINE [Suspect]
     Dates: start: 20050916
  5. CISPLATIN [Suspect]
     Dates: start: 20050916
  6. FLUCONAZOLE [Suspect]
     Dosage: 200 MG, 1X/DAY
     Dates: start: 20050928, end: 20051006
  7. VALTREX [Suspect]
     Dosage: 3 G, 1X/DAY
  8. BACTRIM [Suspect]
     Dosage: 2 TAB(S), 2X/WEEK
  9. DOXORUBICIN [Concomitant]
  10. CYCLOPHOSPHAMIDE [Concomitant]
  11. PREDNISONE TAB [Concomitant]
  12. VINCRISTINE [Concomitant]
  13. RITUXAN [Concomitant]

REACTIONS (1)
  - HEPATITIS TOXIC [None]
